FAERS Safety Report 23024019 (Version 1)
Quarter: 2023Q4

REPORT INFORMATION
  Report Type: Spontaneous
  Country: US (occurrence: US)
  Receive Date: 20231003
  Receipt Date: 20231003
  Transmission Date: 20240109
  Serious: No
  Sender: FDA-Public Use
  Company Number: US-drreddys-SPO/USA/23/0175997

PATIENT
  Age: 26 Year
  Sex: Female

DRUGS (3)
  1. ACCUTANE [Suspect]
     Active Substance: ISOTRETINOIN
     Indication: Product used for unknown indication
     Dosage: FOR ABOUT 3 MONTHS 1 PILL DAILY
     Route: 048
  2. ACCUTANE [Suspect]
     Active Substance: ISOTRETINOIN
     Dosage: SOMETIMES 2 TIMES A DAY
     Route: 048
     Dates: start: 20230601
  3. ACCUTANE [Suspect]
     Active Substance: ISOTRETINOIN
     Route: 048

REACTIONS (3)
  - Xerosis [Unknown]
  - Eczema [Unknown]
  - Cheilitis [Unknown]
